FAERS Safety Report 17113295 (Version 2)
Quarter: 2019Q4

REPORT INFORMATION
  Report Type: Report from Study
  Country: None (occurrence: DE)
  Receive Date: 20191204
  Receipt Date: 20191211
  Transmission Date: 20200122
  Serious: Yes (Hospitalization)
  Sender: FDA-Public Use
  Company Number: DE-ABBVIE-19K-062-3177404-00

PATIENT
  Age: 77 Year
  Sex: Male

DRUGS (8)
  1. JURNISTA [Concomitant]
     Active Substance: HYDROMORPHONE HYDROCHLORIDE
     Indication: PRODUCT USED FOR UNKNOWN INDICATION
  2. BALDRIAN [Concomitant]
     Active Substance: VALERIAN
     Indication: PRODUCT USED FOR UNKNOWN INDICATION
  3. DUODOPA [Suspect]
     Active Substance: CARBIDOPA\LEVODOPA
     Indication: PARKINSON^S DISEASE
     Dosage: MD 5.0ML, CRD 5.0ML/H, CRN 2.3ML/H, ED 2.0ML
     Route: 050
     Dates: start: 20171108, end: 2019
  4. ANTELEPSIN [Concomitant]
     Active Substance: CLONAZEPAM
     Indication: PRODUCT USED FOR UNKNOWN INDICATION
  5. DUODOPA [Suspect]
     Active Substance: CARBIDOPA\LEVODOPA
     Dosage: MD: 5.5 ML, CRD: 5 ML/H, CRN: 3 ML/H, ED: 2 ML
     Route: 050
     Dates: start: 2019, end: 2019
  6. DUODOPA [Suspect]
     Active Substance: CARBIDOPA\LEVODOPA
     Dosage: MD: 5.0 ML, CRD: 5 ML/H, CRN: 3 ML/H, ED: 2 ML
     Route: 050
     Dates: start: 2019
  7. QUETIAPIN [Concomitant]
     Active Substance: QUETIAPINE
     Indication: PRODUCT USED FOR UNKNOWN INDICATION
  8. DUODOPA [Suspect]
     Active Substance: CARBIDOPA\LEVODOPA
     Dosage: MD 5.5ML, CRD 6.0ML/H, CRN 3.0ML/H, ED 2.0ML
     Route: 050
     Dates: start: 2019, end: 2019

REACTIONS (4)
  - Restlessness [Unknown]
  - Akinesia [Not Recovered/Not Resolved]
  - Device dislocation [Unknown]
  - Hyperkinesia [Not Recovered/Not Resolved]

NARRATIVE: CASE EVENT DATE: 2019
